FAERS Safety Report 9721193 (Version 1)
Quarter: 2013Q4

REPORT INFORMATION
  Report Type: Spontaneous
  Country: US (occurrence: US)
  Receive Date: 20131129
  Receipt Date: 20131129
  Transmission Date: 20140711
  Serious: No
  Sender: FDA-Public Use
  Company Number: US-PFIZER INC-2013338289

PATIENT
  Age: 24 Year
  Sex: Female

DRUGS (2)
  1. XALATAN [Suspect]
     Dosage: UNK
  2. TIMOLOL [Suspect]
     Indication: INTRAOCULAR PRESSURE INCREASED
     Dosage: 0.5%, UNK

REACTIONS (2)
  - Drug ineffective [Unknown]
  - Intraocular pressure increased [Recovered/Resolved]
